FAERS Safety Report 5726703-4 (Version None)
Quarter: 2008Q2

REPORT INFORMATION
  Report Type: 
  Country: None (occurrence: None)
  Receive Date: 20080502
  Receipt Date: 20080425
  Transmission Date: 20081010
  Serious: Yes (Other)
  Sender: FDA-Public Use
  Company Number: BR-PFIZER INC-2007084543

PATIENT
  Sex: Female
  Weight: 82 kg

DRUGS (5)
  1. LIPITOR [Suspect]
     Indication: DYSLIPIDAEMIA
     Route: 048
  2. AAS [Concomitant]
     Route: 048
  3. SELOZOK [Concomitant]
     Route: 048
  4. PLAVIX [Concomitant]
     Route: 048
  5. SUSTRATE [Concomitant]
     Route: 048

REACTIONS (1)
  - ANGIOPLASTY [None]
